FAERS Safety Report 10355145 (Version 2)
Quarter: 2014Q3

REPORT INFORMATION
  Report Type: Report from Study
  Country: KR (occurrence: KR)
  Receive Date: 20140731
  Receipt Date: 20140731
  Transmission Date: 20150326
  Serious: Yes (Death, Hospitalization)
  Sender: FDA-Public Use
  Company Number: KR-OTSUKA-JP-2014-15750

PATIENT
  Age: 65 Year
  Sex: Male

DRUGS (11)
  1. EFFEXIN [Concomitant]
     Dosage: UNK
     Dates: start: 20100901, end: 20100901
  2. PLACEBO [Suspect]
     Active Substance: UNSPECIFIED INGREDIENT
     Indication: CEREBRAL INFARCTION
     Dosage: UNK
     Route: 048
     Dates: start: 20091024, end: 20110226
  3. AMOSARTAN [Concomitant]
     Dosage: UNK
     Dates: start: 20100818, end: 20110226
  4. BLINDED PROBUCOL [Suspect]
     Active Substance: PROBUCOL
     Indication: CEREBRAL INFARCTION
     Dosage: UNK
     Route: 048
     Dates: start: 20091024, end: 20110226
  5. BLINDED CILOSTAZOL [Suspect]
     Active Substance: CILOSTAZOL
     Indication: CEREBRAL INFARCTION
     Dosage: UNK
     Route: 048
     Dates: start: 20091024, end: 20110226
  6. BSS [Concomitant]
     Active Substance: CALCIUM CHLORIDE\MAGNESIUM CHLORIDE\POTASSIUM CHLORIDE\SODIUM ACETATE\SODIUM CHLORIDE\SODIUM CITRATE
     Dosage: UNK
     Dates: start: 20100901, end: 20100901
  7. BLINDED ASPIRIN [Suspect]
     Active Substance: ASPIRIN
     Indication: CEREBRAL INFARCTION
     Dosage: UNK
     Route: 048
     Dates: start: 20091024, end: 20110226
  8. DICHLOZID [Concomitant]
     Dosage: UNK
     Dates: start: 20110216, end: 20110226
  9. VIGAMOX [Concomitant]
     Active Substance: MOXIFLOXACIN HYDROCHLORIDE
     Dosage: UNK
     Dates: start: 20100901, end: 20100901
  10. HYAL PLUS [Concomitant]
     Dosage: UNK
     Dates: start: 20100901, end: 20100901
  11. PRED FORTE [Concomitant]
     Active Substance: PREDNISOLONE ACETATE
     Dosage: UNK
     Dates: start: 20100909, end: 20100930

REACTIONS (2)
  - Cataract [Recovered/Resolved]
  - Death [Fatal]

NARRATIVE: CASE EVENT DATE: 20100826
